FAERS Safety Report 11501978 (Version 2)
Quarter: 2015Q4

REPORT INFORMATION
  Report Type: Spontaneous
  Country: GB (occurrence: GB)
  Receive Date: 20150914
  Receipt Date: 20151211
  Transmission Date: 20160304
  Serious: Yes (Hospitalization, Other)
  Sender: FDA-Public Use
  Company Number: GB-AMGEN-GBRSP2015093662

PATIENT
  Age: 70 Year
  Sex: Female

DRUGS (1)
  1. ENBREL [Suspect]
     Active Substance: ETANERCEPT
     Indication: RHEUMATOID ARTHRITIS
     Dosage: 50 MG, UNK
     Route: 065
     Dates: start: 20150730

REACTIONS (7)
  - Injection site mass [Unknown]
  - Groin pain [Unknown]
  - Injection site erythema [Unknown]
  - Injection site swelling [Unknown]
  - Diverticulitis [Unknown]
  - Pain in extremity [Unknown]
  - Sciatica [Unknown]

NARRATIVE: CASE EVENT DATE: 2015
